FAERS Safety Report 20071115 (Version 2)
Quarter: 2021Q4

REPORT INFORMATION
  Report Type: Report from Study
  Country: US (occurrence: US)
  Receive Date: 20211115
  Receipt Date: 20211208
  Transmission Date: 20220304
  Serious: Yes (Hospitalization)
  Sender: FDA-Public Use
  Company Number: US-BIONICAL EMAS-2021ETO000128

PATIENT

DRUGS (1)
  1. ALKINDI SPRINKLE [Suspect]
     Active Substance: HYDROCORTISONE
     Indication: Primary adrenal insufficiency
     Dosage: 6 MG, QD
     Route: 048
     Dates: start: 2021, end: 2021

REACTIONS (6)
  - Insulinoma [Unknown]
  - Hyperinsulinaemia [Unknown]
  - Hypoglycaemia [Unknown]
  - Cortisol increased [Unknown]
  - Constipation [Unknown]
  - Unintentional use for unapproved indication [Unknown]

NARRATIVE: CASE EVENT DATE: 20210101
